FAERS Safety Report 4497546-7 (Version None)
Quarter: 2004Q4

REPORT INFORMATION
  Report Type: 
  Country: None (occurrence: None)
  Receive Date: 20041104
  Receipt Date: 20041026
  Transmission Date: 20050328
  Serious: Yes (Hospitalization)
  Sender: FDA-Public Use
  Company Number: CIP04002306

PATIENT
  Age: 59 Year
  Sex: Female

DRUGS (8)
  1. ACTONEL [Suspect]
     Indication: OSTEOPOROSIS
     Dosage: 35 MG ONCE WEEKLY, ORAL
     Route: 048
     Dates: start: 20040501, end: 20041001
  2. OROXINE (LEVOTHYROXINE SODIUM) [Concomitant]
  3. XANAX [Concomitant]
  4. SINGULAIR (MONTELUKAST) [Concomitant]
  5. SPIRIVA ^BOEHRINGER INGELHEIM^ (TIOTROPIUM BROMIDE) [Concomitant]
  6. BRICANYL [Concomitant]
  7. SERETIDE ^ALLEN + HANBURYS LTD^ (FLUTICASONE PROPIONATE, SALMETEROL XI [Concomitant]
  8. EVENING PRIMROSE OIL (OENOTHERA BIENNIS OIL) [Concomitant]

REACTIONS (2)
  - ASTHMA [None]
  - BRONCHOSPASM [None]
